FAERS Safety Report 7043258-5 (Version None)
Quarter: 2010Q4

REPORT INFORMATION
  Report Type: 
  Country: None (occurrence: None)
  Receive Date: 20101013
  Receipt Date: 20100219
  Transmission Date: 20110411
  Serious: No
  Sender: FDA-Public Use
  Company Number: US-ASTRAZENECA-2010SE07332

PATIENT
  Sex: Female

DRUGS (2)
  1. SYMBICORT [Suspect]
     Dosage: 160 / 4.5 MCG
     Route: 055
  2. NEXIUM [Concomitant]

REACTIONS (2)
  - MALAISE [None]
  - PULMONARY CONGESTION [None]
